FAERS Safety Report 4364113-5 (Version None)
Quarter: 2004Q2

REPORT INFORMATION
  Report Type: 
  Country: None (occurrence: None)
  Receive Date: 20040519
  Receipt Date: 20040505
  Transmission Date: 20050107
  Serious: Yes (Hospitalization, Other)
  Sender: FDA-Public Use
  Company Number: USA-2003-0010853

PATIENT
  Age: 53 Year
  Sex: Female
  Weight: 74.8 kg

DRUGS (26)
  1. OXYCONTIN [Suspect]
     Indication: PAIN
     Dosage: 40 MG, Q12H, ORAL; 40 MG, TID; 60 MG, Q8H
     Dates: start: 20011211, end: 20020304
  2. OXYCONTIN [Suspect]
     Indication: PAIN
     Dosage: 40 MG, Q12H, ORAL; 40 MG, TID; 60 MG, Q8H
     Dates: end: 20030901
  3. OXYCONTIN [Suspect]
     Indication: PAIN
     Dosage: 40 MG, Q12H, ORAL; 40 MG, TID; 60 MG, Q8H
     Dates: start: 20020304
  4. AMBIEN [Concomitant]
  5. VALIUM [Concomitant]
  6. ZANAFLEX [Concomitant]
  7. SEREVENT [Concomitant]
  8. ATROVENT [Concomitant]
  9. FLOVENT [Concomitant]
  10. COMBIVENT [Concomitant]
  11. ALBUTEROL [Concomitant]
  12. TRENTAL [Concomitant]
  13. MILK THISTLE [Concomitant]
  14. PIPERACILLIN SODIUM W/TAZOBACTAM SODIUM (PIPERACILLIN SODIUM, TAZOBACT [Concomitant]
  15. VANCOMYCIN [Concomitant]
  16. POLYETHYLENE GLYCOL (MACROGOL) [Concomitant]
  17. FERROUS SULFATE TAB [Concomitant]
  18. NIZATIDINE [Concomitant]
  19. DOCUSATE CALCIUM (DOCUSATE CALCIUM) [Concomitant]
  20. BISACODYL [Concomitant]
  21. MAALOX (MAGNESIUM HYDROXIDE, ALUMINUM HYDROXIDE GEL) [Concomitant]
  22. ESTRAZOLAM (ESTRAZOLAM) [Concomitant]
  23. BENADRYL [Concomitant]
  24. NYSTATIN [Concomitant]
  25. PROMETHAZINE [Concomitant]
  26. SOMA [Concomitant]

REACTIONS (37)
  - ANXIETY [None]
  - ATELECTASIS [None]
  - BLOOD CULTURE POSITIVE [None]
  - BLOOD PRESSURE DECREASED [None]
  - CONDITION AGGRAVATED [None]
  - CONSTIPATION [None]
  - DECREASED APPETITE [None]
  - DEPRESSION [None]
  - DRUG DEPENDENCE [None]
  - DRUG WITHDRAWAL SYNDROME [None]
  - HAEMANGIOMA OF LIVER [None]
  - HAEMORRHAGE [None]
  - HYPOAESTHESIA [None]
  - HYPONATRAEMIA [None]
  - HYPOXIA [None]
  - ILEUS [None]
  - INADEQUATE ANALGESIA [None]
  - INSOMNIA [None]
  - JAUNDICE [None]
  - KLEBSIELLA INFECTION [None]
  - NEUROPATHIC PAIN [None]
  - PAIN [None]
  - PALLOR [None]
  - PARAESTHESIA [None]
  - PNEUMONIA [None]
  - PNEUMONIA ASPIRATION [None]
  - PRURITUS [None]
  - PULMONARY GRANULOMA [None]
  - RASH MACULAR [None]
  - RESPIRATORY DISTRESS [None]
  - SEPTIC SHOCK [None]
  - SOMNOLENCE [None]
  - TACHYCARDIA [None]
  - TACHYPNOEA [None]
  - TENOSYNOVITIS [None]
  - URINARY TRACT INFECTION [None]
  - WOUND INFECTION [None]
